FAERS Safety Report 6502633-5 (Version None)
Quarter: 2009Q4

REPORT INFORMATION
  Report Type: 
  Country: None (occurrence: None)
  Receive Date: 20091127
  Receipt Date: 20090115
  Transmission Date: 20100525
  Serious: Yes (Other)
  Sender: FDA-Public Use
  Company Number: WAES 0901USA01969

PATIENT
  Age: 56 Year
  Sex: Female
  Weight: 53.5244 kg

DRUGS (1)
  1. FOSAMAX [Suspect]
     Indication: OSTEOPOROSIS
     Dosage: 150 MG/MTH/PO ; 35 MG/DAILY/PO
     Route: 048
     Dates: start: 20081226, end: 20090108

REACTIONS (4)
  - BACK PAIN [None]
  - DRUG ADMINISTRATION ERROR [None]
  - PRURITUS [None]
  - RASH PAPULAR [None]
